FAERS Safety Report 5952136-1 (Version None)
Quarter: 2008Q4

REPORT INFORMATION
  Report Type: 
  Country: None (occurrence: None)
  Receive Date: 20081113
  Receipt Date: 20080613
  Transmission Date: 20090506
  Serious: No
  Sender: FDA-Public Use
  Company Number: A0732899A

PATIENT
  Age: 86 Year
  Sex: Female

DRUGS (5)
  1. CARVEDILOL [Suspect]
     Indication: ARRHYTHMIA
     Dosage: 6.25MG PER DAY
     Route: 048
     Dates: start: 20080603
  2. ISOSORBIDE MONONITRATE [Concomitant]
  3. ASPIRIN [Concomitant]
  4. VENTOLIN [Concomitant]
  5. LASIX [Concomitant]

REACTIONS (2)
  - BLOOD PRESSURE INCREASED [None]
  - DRUG INEFFECTIVE [None]
